FAERS Safety Report 5834989-0 (Version None)
Quarter: 2008Q3

REPORT INFORMATION
  Report Type: 
  Country: None (occurrence: None)
  Receive Date: 20080804
  Receipt Date: 20080729
  Transmission Date: 20090109
  Serious: Yes (Death, Other)
  Sender: FDA-Public Use
  Company Number: 2007SP002646

PATIENT
  Age: 44 Year
  Sex: Male
  Weight: 54.5 kg

DRUGS (6)
  1. TEMODAL [Suspect]
     Indication: GLIOBLASTOMA MULTIFORME
     Dosage: 150 MG/M2; QD; PO
     Route: 048
     Dates: start: 20060925, end: 20060929
  2. GLYCEREB [Concomitant]
  3. PHENOBARBITAL TAB [Concomitant]
  4. EXCEGRAN [Concomitant]
     Indication: DISEASE RECURRENCE
  5. BETAMETHASONE [Concomitant]
  6. GASTER D [Concomitant]

REACTIONS (4)
  - ASPARTATE AMINOTRANSFERASE INCREASED [None]
  - DISEASE PROGRESSION [None]
  - GAMMA-GLUTAMYLTRANSFERASE INCREASED [None]
  - LYMPHOCYTE COUNT DECREASED [None]
